FAERS Safety Report 8396191-0 (Version None)
Quarter: 2012Q2

REPORT INFORMATION
  Report Type: 
  Country: None (occurrence: None)
  Receive Date: 20120530
  Receipt Date: 20120528
  Transmission Date: 20120825
  Serious: Yes (Hospitalization)
  Sender: FDA-Public Use
  Company Number: GB-VIIV HEALTHCARE LIMITED-B0799910A

PATIENT
  Age: 6 Year
  Sex: Male

DRUGS (3)
  1. LAMIVUDINE (EPIVIR HBV) [Concomitant]
  2. ETRAVIRINE [Concomitant]
  3. ABACAVIR [Suspect]
     Indication: HIV INFECTION
     Dosage: 300MG PER DAY
     Route: 065

REACTIONS (3)
  - HYPERSENSITIVITY [None]
  - HYPERTENSION [None]
  - COMA SCALE ABNORMAL [None]
